FAERS Safety Report 8414939-3 (Version None)
Quarter: 2012Q2

REPORT INFORMATION
  Report Type: 
  Country: None (occurrence: None)
  Receive Date: 20120601
  Receipt Date: 20120601
  Transmission Date: 20120825
  Serious: No
  Sender: FDA-Public Use
  Company Number: None

PATIENT
  Sex: Female
  Weight: 55.3388 kg

DRUGS (2)
  1. LYRICA [Suspect]
     Indication: NEURALGIA
     Dosage: 1 TWICE A DAY PO
     Route: 048
     Dates: start: 20111010, end: 20120427
  2. LYRICA [Suspect]
     Indication: FIBROMYALGIA
     Dosage: 1 TWICE A DAY PO
     Route: 048
     Dates: start: 20101010, end: 20120427

REACTIONS (12)
  - DRUG WITHDRAWAL SYNDROME [None]
  - URINARY INCONTINENCE [None]
  - NAUSEA [None]
  - HYPERHIDROSIS [None]
  - VISION BLURRED [None]
  - MYALGIA [None]
  - INSOMNIA [None]
  - DIARRHOEA [None]
  - FEELING JITTERY [None]
  - ASTHENIA [None]
  - DECREASED APPETITE [None]
  - FATIGUE [None]
